FAERS Safety Report 19934800 (Version 1)
Quarter: 2021Q4

REPORT INFORMATION
  Report Type: Spontaneous
  Country: US (occurrence: US)
  Receive Date: 20211009
  Receipt Date: 20211009
  Transmission Date: 20220303
  Serious: No
  Sender: FDA-Public Use
  Company Number: US-ORGANON-O2110USA000373

PATIENT

DRUGS (2)
  1. COZAAR [Suspect]
     Active Substance: LOSARTAN POTASSIUM
     Dosage: UNK
  2. INLYTA [Suspect]
     Active Substance: AXITINIB
     Dosage: UNK
     Dates: start: 20210916

REACTIONS (2)
  - Blood pressure systolic increased [Recovered/Resolved]
  - Product dose omission issue [Unknown]
